FAERS Safety Report 8578775 (Version 4)
Quarter: 2012Q4

REPORT INFORMATION
  Report Type: Report from Study
  Country: JP (occurrence: JP)
  Receive Date: 20120524
  Receipt Date: 20121002
  Transmission Date: 20130627
  Serious: Yes (Other)
  Sender: FDA-Public Use
  Company Number: JP-VERTEX PHARMACEUTICAL INC.-AE-2012-007466

PATIENT
  Age: 65 Year
  Sex: Male

DRUGS (12)
  1. VX-950 [Suspect]
     Indication: HEPATITIS C
     Dosage: 2250 mg, qd
     Route: 048
     Dates: start: 20120507, end: 20120729
  2. PEGINTRON                          /01543001/ [Suspect]
     Indication: HEPATITIS C
     Dosage: 1.5 UNK, UNK
     Route: 058
     Dates: start: 20120507, end: 20120507
  3. PEGINTRON                          /01543001/ [Suspect]
     Dosage: 0.7 UNK, UNK
     Route: 058
     Dates: start: 20120514, end: 20120521
  4. PEGINTRON                          /01543001/ [Suspect]
     Dosage: 1.2 UNK, UNK
     Route: 058
     Dates: start: 20120528
  5. REBETOL [Suspect]
     Indication: HEPATITIS C
     Dosage: 800 mg, qd
     Route: 048
     Dates: start: 20120507
  6. REBETOL [Suspect]
     Dosage: 600 mg, qd
     Route: 048
     Dates: start: 20120618
  7. REBETOL [Suspect]
     Dosage: 400 mg, qd
     Route: 048
     Dates: start: 20120625, end: 20120708
  8. REBETOL [Suspect]
     Dosage: 200 mg, qd
     Route: 048
     Dates: start: 20120709
  9. AMOBAN [Concomitant]
     Dosage: 7.5 mg, qd
     Route: 048
     Dates: start: 20120515
  10. TALION                             /01587402/ [Concomitant]
     Dosage: 20 mg, qd
     Route: 048
  11. ALLOZYM [Concomitant]
     Dosage: 200 mg, qd
     Route: 048
     Dates: end: 20120708
  12. ALTAT [Concomitant]
     Dosage: 150 mg, qd
     Route: 048

REACTIONS (9)
  - Neutrophil count decreased [Recovered/Resolved]
  - Nausea [None]
  - Vomiting [None]
  - Decreased appetite [None]
  - Drug eruption [None]
  - Eczema [None]
  - Insomnia [None]
  - Hyperuricaemia [None]
  - Haemoglobin decreased [None]
